FAERS Safety Report 18373758 (Version 1)
Quarter: 2020Q4

REPORT INFORMATION
  Report Type: Spontaneous
  Country: US (occurrence: US)
  Receive Date: 20201013
  Receipt Date: 20201013
  Transmission Date: 20210114
  Serious: No
  Sender: FDA-Public Use
  Company Number: US-AMGEN-USASP2020164635

PATIENT
  Age: 37 Year
  Sex: Female

DRUGS (4)
  1. TAMOXIFEN [Concomitant]
     Active Substance: TAMOXIFEN
     Dosage: 20 MILLIGRAM
  2. OTEZLA [Suspect]
     Active Substance: APREMILAST
     Indication: ANXIETY DISORDER
     Dosage: 30 MILLIGRAM, BID
     Route: 048
     Dates: start: 20191225
  3. AMNESTEEM [Concomitant]
     Active Substance: ISOTRETINOIN
     Dosage: 20 MILLIGRAM
  4. VENLAFAXINE [Concomitant]
     Active Substance: VENLAFAXINE HYDROCHLORIDE
     Dosage: 75 MILLIGRAM (ER)

REACTIONS (4)
  - Off label use [Unknown]
  - Osteopenia [Not Recovered/Not Resolved]
  - Nausea [Not Recovered/Not Resolved]
  - Anxiety [Not Recovered/Not Resolved]

NARRATIVE: CASE EVENT DATE: 20191225
